FAERS Safety Report 9491077 (Version 1)
Quarter: 2013Q3

REPORT INFORMATION
  Report Type: Spontaneous
  Country: US (occurrence: US)
  Receive Date: 20130830
  Receipt Date: 20130830
  Transmission Date: 20140515
  Serious: Yes (Other)
  Sender: FDA-Public Use
  Company Number: US-PFIZER INC-2013248560

PATIENT
  Age: 59 Year
  Sex: Female
  Weight: 95.24 kg

DRUGS (1)
  1. GEODON [Suspect]
     Indication: BIPOLAR DISORDER
     Dosage: 40 MG, UNK
     Route: 048
     Dates: start: 20130805, end: 201308

REACTIONS (4)
  - Tardive dyskinesia [Recovered/Resolved]
  - Dysarthria [Unknown]
  - Trigeminal nerve disorder [Unknown]
  - Eating disorder [Unknown]
